FAERS Safety Report 10913679 (Version 2)
Quarter: 2015Q2

REPORT INFORMATION
  Report Type: Spontaneous
  Country: DE (occurrence: DE)
  Receive Date: 20150313
  Receipt Date: 20150515
  Transmission Date: 20150821
  Serious: Yes (Hospitalization, Other)
  Sender: FDA-Public Use
  Company Number: DE-TEVA-545778GER

PATIENT
  Age: 62 Year
  Sex: Male
  Weight: 79 kg

DRUGS (1)
  1. DICLOFENAC-RATIOPHARM 50 MG ZAEPFCHEN [Suspect]
     Active Substance: DICLOFENAC
     Indication: URINARY TRACT INFECTION
     Dosage: 100 MILLIGRAM DAILY; ONE IN THE MORNING, ONE IN THE EVENING
     Route: 054
     Dates: start: 20150206, end: 20150224

REACTIONS (2)
  - Incorrect drug administration duration [Recovered/Resolved]
  - Hypertensive crisis [Recovered/Resolved]

NARRATIVE: CASE EVENT DATE: 2015
